FAERS Safety Report 5689942-7 (Version None)
Quarter: 2008Q1

REPORT INFORMATION
  Report Type: 
  Country: None (occurrence: None)
  Receive Date: 20080331
  Receipt Date: 20080331
  Transmission Date: 20080703
  Serious: Yes (Hospitalization)
  Sender: FDA-Public Use
  Company Number: None

PATIENT
  Sex: Female
  Weight: 90 kg

DRUGS (3)
  1. CISPLATIN [Suspect]
     Dosage: 120 MG
  2. ERBITUX [Suspect]
     Dosage: 1254 MG
  3. CAMPTOSAR [Suspect]
     Dosage: 250 MG

REACTIONS (5)
  - DEHYDRATION [None]
  - DIARRHOEA [None]
  - GENERAL PHYSICAL HEALTH DETERIORATION [None]
  - NAUSEA [None]
  - SYNCOPE [None]
